FAERS Safety Report 5189784-5 (Version None)
Quarter: 2006Q4

REPORT INFORMATION
  Report Type: 
  Country: None (occurrence: None)
  Receive Date: 20061215
  Receipt Date: 20061204
  Transmission Date: 20070319
  Serious: Yes (Other)
  Sender: FDA-Public Use
  Company Number: 2006141725

PATIENT
  Age: 58 Year
  Sex: Male
  Weight: 58 kg

DRUGS (2)
  1. XALATAN [Suspect]
     Dosage: 4 DROP (2 DROP, 2 IN 1 D), OPHTHALMIC
     Route: 047
     Dates: start: 20060410
  2. ENALAPRIL MALEATE [Concomitant]

REACTIONS (2)
  - HAEMOGLOBIN DECREASED [None]
  - VITAMIN B12 INCREASED [None]
